FAERS Safety Report 5777744-2 (Version None)
Quarter: 2008Q2

REPORT INFORMATION
  Report Type: 
  Country: None (occurrence: None)
  Receive Date: 20080618
  Receipt Date: 20080609
  Transmission Date: 20081010
  Serious: Yes (Hospitalization)
  Sender: FDA-Public Use
  Company Number: US-BAYER-200812385BCC

PATIENT
  Age: 78 Year
  Sex: Male

DRUGS (4)
  1. ASPIRIN [Suspect]
     Indication: STENT PLACEMENT
     Route: 065
     Dates: start: 20080425
  2. PLAVIX [Suspect]
     Indication: STENT PLACEMENT
     Route: 048
     Dates: start: 20080425, end: 20080430
  3. PLAVIX [Suspect]
     Route: 048
     Dates: start: 20080430
  4. COUMADIN [Suspect]

REACTIONS (3)
  - CORONARY ARTERY RESTENOSIS [None]
  - GASTROINTESTINAL HAEMORRHAGE [None]
  - MYOCARDIAL INFARCTION [None]
